FAERS Safety Report 6337628-8 (Version None)
Quarter: 2009Q3

REPORT INFORMATION
  Report Type: 
  Country: None (occurrence: None)
  Receive Date: 20090902
  Receipt Date: 20090821
  Transmission Date: 20100115
  Serious: Yes (Other)
  Sender: FDA-Public Use
  Company Number: US-ELI_LILLY_AND_COMPANY-US200908002442

PATIENT
  Sex: Male

DRUGS (6)
  1. ZYPREXA [Suspect]
     Indication: STRESS
  2. ZYPREXA [Suspect]
  3. ZYPREXA [Suspect]
  4. ZYPREXA [Suspect]
  5. ZYPREXA [Suspect]
  6. CYMBALTA [Suspect]
     Indication: STRESS
     Dosage: 30 MG, DAILY (1/D)

REACTIONS (12)
  - ANAEMIA [None]
  - FALL [None]
  - HAEMATOCHEZIA [None]
  - HAEMATOSPERMIA [None]
  - HAEMATURIA [None]
  - HAEMORRHAGE [None]
  - HEPATIC CIRRHOSIS [None]
  - HEPATIC HAEMORRHAGE [None]
  - LIVER INJURY [None]
  - OFF LABEL USE [None]
  - PLATELET COUNT DECREASED [None]
  - SYNCOPE [None]
